FAERS Safety Report 5401242-9 (Version None)
Quarter: 2007Q3

REPORT INFORMATION
  Report Type: 
  Country: None (occurrence: None)
  Receive Date: 20070731
  Receipt Date: 20070716
  Transmission Date: 20080115
  Serious: Yes (Life-Threatening, Hospitalization)
  Sender: FDA-Public Use
  Company Number: DE-AVENTIS-200211089DE

PATIENT
  Sex: Male
  Weight: 90 kg

DRUGS (3)
  1. RILUZOLE [Suspect]
     Indication: MULTIPLE SYSTEM ATROPHY
     Route: 048
     Dates: start: 20011205
  2. LEVODOPA [Concomitant]
     Indication: MULTIPLE SYSTEM ATROPHY
     Route: 048
     Dates: start: 20000822
  3. BROMOCRIPTINE MESYLATE [Concomitant]
     Indication: MULTIPLE SYSTEM ATROPHY
     Route: 048
     Dates: start: 20000822

REACTIONS (3)
  - DEEP VEIN THROMBOSIS [None]
  - HYPOTENSION [None]
  - PULMONARY EMBOLISM [None]
